FAERS Safety Report 18311953 (Version 1)
Quarter: 2020Q3

REPORT INFORMATION
  Report Type: Spontaneous
  Country: US (occurrence: US)
  Receive Date: 20200925
  Receipt Date: 20200925
  Transmission Date: 20201103
  Serious: Yes (Disabling)
  Sender: FDA-Public Use
  Company Number: None

PATIENT
  Age: 66 Year
  Sex: Male

DRUGS (9)
  1. AMLODIPINE 10MG TAKE 1 TABLET ORALLY ONCE DAILY [Concomitant]
     Dates: start: 20200728
  2. GABAPENTIN 100MG TAKE 1 CAPSULE 3 TIMES DAILY [Concomitant]
     Dates: start: 20191101
  3. CYCLOBENZAPRINE 10MG TABLET. TAKE 1 TABLET PO TID PRN MUSCLE SPASM [Concomitant]
     Dates: start: 20191006, end: 20191105
  4. LOSARTAN TABLETS [Suspect]
     Active Substance: LOSARTAN
     Indication: HYPERTENSION
     Route: 048
     Dates: start: 20200723, end: 20200822
  5. METOPROLOL 50MG ONE TAB TWICE DAILY [Concomitant]
     Dates: start: 20200818
  6. HYDROCODONE/APAP 10/325MG TAKE 1 TABLET  THREE TIMES DAILY [Concomitant]
     Dates: start: 20200827
  7. ALBUTEROL INHALER. INHALE 2 PUFFS Q4 PRN [Concomitant]
     Dates: start: 20190413
  8. MELOXICAM 15MG TAKE 1 TABLET ORALLY ONCE DAILY [Concomitant]
     Dates: start: 20200207
  9. TRAMADOL 50MG. TAKE 1 TAB PO TID [Concomitant]
     Dates: start: 20190823, end: 20190922

REACTIONS (3)
  - Therapy cessation [None]
  - Irritability [None]
  - Anger [None]

NARRATIVE: CASE EVENT DATE: 20200723
